FAERS Safety Report 13289880 (Version 1)
Quarter: 2017Q1

REPORT INFORMATION
  Report Type: Spontaneous
  Country: US (occurrence: US)
  Receive Date: 20170302
  Receipt Date: 20170302
  Transmission Date: 20170428
  Serious: Yes (Other)
  Sender: FDA-Public Use
  Company Number: US-DEPOMED, INC.-US-2016DEP008560

PATIENT

DRUGS (23)
  1. MORPHINE [Interacting]
     Active Substance: MORPHINE
     Indication: PAIN
     Dosage: 15/30MG, QD, AT NIGHT
     Route: 048
     Dates: start: 201603
  2. ENALAPRIL/HYDROCHLOROTHIAZIDE [Concomitant]
     Active Substance: ENALAPRIL MALEATE\HYDROCHLOROTHIAZIDE
     Indication: HYPERTENSION
     Dosage: 10/25MG, QD
     Route: 048
  3. AMBIEN [Concomitant]
     Active Substance: ZOLPIDEM TARTRATE
     Indication: INSOMNIA
     Dosage: 1 DF, QD, AT NIGHT
  4. GRALISE [Suspect]
     Active Substance: GABAPENTIN
     Indication: NEUROPATHY PERIPHERAL
     Dosage: 1800 MG, QD
     Route: 048
     Dates: start: 20160323
  5. GRALISE [Interacting]
     Active Substance: GABAPENTIN
     Dosage: 1200 MG, QD
     Route: 048
     Dates: start: 201603, end: 20160322
  6. GRALISE [Interacting]
     Active Substance: GABAPENTIN
     Dosage: 1200 MG, QD
     Route: 048
     Dates: start: 201603, end: 201603
  7. MULTIVITAMIN                       /07504101/ [Concomitant]
     Active Substance: VITAMINS
     Indication: VITAMIN SUPPLEMENTATION
     Dosage: 1 DF, QD
  8. GRALISE [Interacting]
     Active Substance: GABAPENTIN
     Dosage: 600 MG, QD
     Route: 048
     Dates: start: 2016, end: 2016
  9. SIMVASTATIN. [Concomitant]
     Active Substance: SIMVASTATIN
     Indication: BLOOD CHOLESTEROL INCREASED
     Dosage: 40 MG, QD
     Route: 048
  10. FENOFIBRATE. [Concomitant]
     Active Substance: FENOFIBRATE
     Indication: BLOOD TRIGLYCERIDES INCREASED
     Dosage: 160 MG, QD, AT NIGHT
     Route: 048
  11. OMEPRAZOLE. [Concomitant]
     Active Substance: OMEPRAZOLE
     Indication: GASTROOESOPHAGEAL REFLUX DISEASE
     Dosage: 20 MG, BID
     Route: 048
  12. GRALISE [Interacting]
     Active Substance: GABAPENTIN
     Dosage: 300 MG, QD
     Route: 048
     Dates: start: 2016, end: 2016
  13. GRALISE [Interacting]
     Active Substance: GABAPENTIN
     Dosage: 1200 MG, QD
     Route: 048
     Dates: start: 201603, end: 201603
  14. GRALISE [Interacting]
     Active Substance: GABAPENTIN
     Dosage: 1800 MG, QD
     Route: 048
     Dates: start: 201603, end: 201603
  15. VITAMIN D3 [Concomitant]
     Active Substance: CHOLECALCIFEROL
     Indication: VITAMIN SUPPLEMENTATION
     Dosage: 1 DF, QD
  16. NORCO [Concomitant]
     Active Substance: ACETAMINOPHEN\HYDROCODONE BITARTRATE
     Indication: BREAKTHROUGH PAIN
     Dosage: 5 MG, PRN
     Route: 048
  17. GRALISE [Interacting]
     Active Substance: GABAPENTIN
     Dosage: 1800 MG, QD
     Route: 048
     Dates: start: 201603, end: 201603
  18. GRALISE [Interacting]
     Active Substance: GABAPENTIN
     Dosage: 1500 MG, QD
     Route: 048
     Dates: start: 201603, end: 201603
  19. GRALISE [Interacting]
     Active Substance: GABAPENTIN
     Dosage: 900 MG, QD
     Route: 048
     Dates: start: 201603, end: 201603
  20. MORPHINE [Interacting]
     Active Substance: MORPHINE
     Indication: INSOMNIA
     Dosage: 1 DF, QD, AT NIGHT
     Route: 048
     Dates: start: 2016, end: 201603
  21. ESCITALOPRAM [Concomitant]
     Active Substance: ESCITALOPRAM OXALATE
     Indication: DEPRESSION
     Dosage: 20 MG, QD
     Route: 048
  22. ATENOLOL. [Concomitant]
     Active Substance: ATENOLOL
     Indication: SUPRAVENTRICULAR EXTRASYSTOLES
     Dosage: 25 MG, QD, AT NIGHT
     Route: 048
  23. DIAZEPAM. [Concomitant]
     Active Substance: DIAZEPAM
     Indication: ANXIETY
     Dosage: 5 MG, QD
     Route: 048

REACTIONS (9)
  - Drug titration error [Recovered/Resolved]
  - Confusional state [Recovering/Resolving]
  - Hypersomnia [Not Recovered/Not Resolved]
  - Medial tibial stress syndrome [Recovering/Resolving]
  - Somnolence [Recovered/Resolved with Sequelae]
  - Pain in extremity [Recovering/Resolving]
  - Memory impairment [Recovered/Resolved with Sequelae]
  - Drug interaction [Unknown]
  - Hangover [Recovered/Resolved with Sequelae]

NARRATIVE: CASE EVENT DATE: 201603
